FAERS Safety Report 7731497-7 (Version None)
Quarter: 2011Q3

REPORT INFORMATION
  Report Type: 
  Country: None (occurrence: None)
  Receive Date: 20110906
  Receipt Date: 20110607
  Transmission Date: 20111222
  Serious: No
  Sender: FDA-Public Use
  Company Number: US-AMGEN-USASP2011029153

PATIENT
  Age: 85 Year
  Sex: Female

DRUGS (8)
  1. PROLIA [Suspect]
     Indication: OSTEOPOROSIS POSTMENOPAUSAL
     Dosage: 60 MG, Q6MO
     Route: 058
     Dates: start: 20101123
  2. DILTIAZEM [Concomitant]
  3. LIPITOR [Concomitant]
  4. TRAVATAN Z [Concomitant]
     Dates: start: 20110603, end: 20110601
  5. COZAAR [Concomitant]
     Dates: end: 20110607
  6. CALCIUM W/VITAMIN D                /00188401/ [Concomitant]
  7. VITAMIN K TAB [Concomitant]
  8. MULTIVITAMIN                       /00097801/ [Concomitant]

REACTIONS (3)
  - BALANCE DISORDER [None]
  - NAUSEA [None]
  - DIZZINESS [None]
